FAERS Safety Report 12749847 (Version 1)
Quarter: 2016Q3

REPORT INFORMATION
  Report Type: Spontaneous
  Country: US (occurrence: US)
  Receive Date: 20160915
  Receipt Date: 20160915
  Transmission Date: 20161109
  Serious: Yes (Disabling)
  Sender: FDA-Public Use
  Company Number: None

PATIENT
  Age: 70 Year
  Sex: Male
  Weight: 72 kg

DRUGS (2)
  1. DORZOLAMIDE 2% / TIMOLOL 0.5% [Suspect]
     Active Substance: DORZOLAMIDE\TIMOLOL
     Indication: EYE OPERATION
     Dosage: OTHER STRENGTH:% AND 0.5%;OTHER DOSE:;OTHER FREQUENCY:;OTHER ROUTE:
     Route: 047
     Dates: start: 20160714, end: 20160823
  2. DORZOLAMIDE 2% / TIMOLOL 0.5% [Suspect]
     Active Substance: DORZOLAMIDE\TIMOLOL
     Indication: POSTOPERATIVE CARE
     Dosage: OTHER STRENGTH:% AND 0.5%;OTHER DOSE:;OTHER FREQUENCY:;OTHER ROUTE:
     Route: 047
     Dates: start: 20160714, end: 20160823

REACTIONS (1)
  - Cataract [None]

NARRATIVE: CASE EVENT DATE: 20160823
